FAERS Safety Report 20642451 (Version 1)
Quarter: 2022Q1

REPORT INFORMATION
  Report Type: Spontaneous
  Country: US (occurrence: None)
  Receive Date: 20220325
  Receipt Date: 20220325
  Transmission Date: 20220424
  Serious: Yes (Hospitalization)
  Sender: FDA-Public Use
  Company Number: None

PATIENT
  Sex: Male
  Weight: 77.1 kg

DRUGS (1)
  1. TAXOL [Suspect]
     Active Substance: PACLITAXEL
     Indication: Product used for unknown indication
     Dates: start: 20211103, end: 20220309

REACTIONS (9)
  - Dizziness [None]
  - Asthenia [None]
  - Hypotension [None]
  - Haemoglobin decreased [None]
  - Pulmonary embolism [None]
  - Pulmonary artery occlusion [None]
  - Peptic ulcer [None]
  - Duodenal ulcer [None]
  - Gastric haemorrhage [None]

NARRATIVE: CASE EVENT DATE: 20220317
